FAERS Safety Report 23646771 (Version 1)
Quarter: 2024Q1

REPORT INFORMATION
  Report Type: Report from Study
  Country: US (occurrence: US)
  Receive Date: 20240319
  Receipt Date: 20240319
  Transmission Date: 20240410
  Serious: Yes (Other)
  Sender: FDA-Public Use
  Company Number: US-UCBSA-2024012294

PATIENT
  Sex: Male
  Weight: 75.283 kg

DRUGS (2)
  1. LEVETIRACETAM [Suspect]
     Active Substance: LEVETIRACETAM
     Indication: Idiopathic generalised epilepsy
     Dosage: 1000 MILLIGRAM, 1 IN THE AM AND 2 PO QHS
     Route: 048
     Dates: start: 2023
  2. LEVETIRACETAM [Suspect]
     Active Substance: LEVETIRACETAM
     Indication: Epilepsy

REACTIONS (6)
  - Seizure [Unknown]
  - Abnormal loss of weight [Recovered/Resolved]
  - Anxiety disorder [Recovered/Resolved]
  - Off label use [Unknown]
  - Product dose omission issue [Unknown]
  - Inability to afford medication [Unknown]

NARRATIVE: CASE EVENT DATE: 20230101
